FAERS Safety Report 25656650 (Version 1)
Quarter: 2025Q3

REPORT INFORMATION
  Report Type: Spontaneous
  Country: US (occurrence: US)
  Receive Date: 20250807
  Receipt Date: 20250807
  Transmission Date: 20251020
  Serious: Yes (Other)
  Sender: NOVO NORDISK
  Company Number: US-NOVOPROD-1491099

PATIENT
  Age: 69 Year
  Sex: Male

DRUGS (2)
  1. OZEMPIC [Suspect]
     Active Substance: SEMAGLUTIDE
  2. OZEMPIC [Suspect]
     Active Substance: SEMAGLUTIDE
     Indication: Type 2 diabetes mellitus
     Dosage: 0.5 MG, QW
     Dates: start: 202505

REACTIONS (4)
  - Abdominal pain upper [Recovered/Resolved]
  - Dehydration [Recovered/Resolved]
  - AST/ALT ratio abnormal [Not Recovered/Not Resolved]
  - Chromaturia [Recovered/Resolved]

NARRATIVE: CASE EVENT DATE: 20250722
